FAERS Safety Report 6112713-4 (Version None)
Quarter: 2009Q1

REPORT INFORMATION
  Report Type: 
  Country: None (occurrence: None)
  Receive Date: 20090312
  Receipt Date: 20090303
  Transmission Date: 20090719
  Serious: Yes (Hospitalization)
  Sender: FDA-Public Use
  Company Number: GB-BAXTER-2009BH003585

PATIENT
  Age: 32 Year
  Sex: Female

DRUGS (29)
  1. CYCLOPHOSPHAMIDE [Suspect]
     Indication: SYSTEMIC LUPUS ERYTHEMATOSUS
     Route: 065
     Dates: start: 20040624, end: 20040718
  2. CYCLOPHOSPHAMIDE [Suspect]
     Route: 065
     Dates: start: 20030729, end: 20030812
  3. METHYLPREDNISOLONE 4MG TAB [Suspect]
     Indication: SYSTEMIC LUPUS ERYTHEMATOSUS
     Route: 042
     Dates: start: 20071106, end: 20071219
  4. METHYLPREDNISOLONE 4MG TAB [Suspect]
     Route: 042
     Dates: start: 20051010, end: 20051026
  5. METHYLPREDNISOLONE 4MG TAB [Suspect]
     Route: 042
     Dates: start: 20070316, end: 20070404
  6. METHYLPREDNISOLONE 4MG TAB [Suspect]
     Route: 042
     Dates: start: 20040624, end: 20040718
  7. METHYLPREDNISOLONE 4MG TAB [Suspect]
     Route: 042
     Dates: start: 20030729, end: 20030812
  8. METHYLPREDNISOLONE 4MG TAB [Suspect]
     Route: 042
     Dates: start: 20050412, end: 20050426
  9. RITUXIMAB [Suspect]
     Indication: SYSTEMIC LUPUS ERYTHEMATOSUS
     Route: 065
     Dates: start: 20071106, end: 20071219
  10. RITUXIMAB [Suspect]
     Route: 065
     Dates: start: 20051010, end: 20051026
  11. RITUXIMAB [Suspect]
     Route: 065
     Dates: start: 20050412, end: 20050426
  12. RITUXIMAB [Suspect]
     Route: 065
     Dates: start: 20070316, end: 20070404
  13. RITUXIMAB [Suspect]
     Route: 065
     Dates: start: 20040624, end: 20040718
  14. RITUXIMAB [Suspect]
     Route: 065
     Dates: start: 20030729, end: 20030812
  15. ASCORBIC ACID [Concomitant]
     Indication: PROMOTION OF WOUND HEALING
  16. BACLOFEN [Concomitant]
     Indication: PARAPLEGIA
  17. CALCICHEW D3 [Concomitant]
     Indication: PROPHYLAXIS
  18. CITALOPRAM HYDROBROMIDE [Concomitant]
     Indication: DEPRESSION
  19. DIAZEPAM [Concomitant]
     Indication: ANXIETY
  20. FENTANYL-25 [Concomitant]
     Indication: PAIN
     Route: 062
  21. FERROUS SULFATE TAB [Concomitant]
     Indication: ANAEMIA
  22. FRUSEMIDE [Concomitant]
     Indication: OEDEMA
  23. GABAPENTIN [Concomitant]
     Indication: PAIN
  24. HYDROXYCHLOROQUINE [Concomitant]
     Indication: SYSTEMIC LUPUS ERYTHEMATOSUS
     Route: 048
  25. LANSOPRAZOLE [Concomitant]
     Indication: DYSPEPSIA
     Route: 048
  26. PREDNISOLONE [Concomitant]
     Indication: SYSTEMIC LUPUS ERYTHEMATOSUS
     Route: 048
  27. TRAMADOL [Concomitant]
     Indication: PAIN
  28. VITAMIN B COMPLEX CAP [Concomitant]
     Indication: NEUROPATHY PERIPHERAL
  29. WARFARIN SODIUM [Concomitant]
     Indication: ANTIPHOSPHOLIPID SYNDROME
     Route: 048

REACTIONS (5)
  - BLOOD IMMUNOGLOBULIN M DECREASED [None]
  - BURSITIS INFECTIVE STAPHYLOCOCCAL [None]
  - KLEBSIELLA INFECTION [None]
  - SKIN ULCER [None]
  - STAPHYLOCOCCAL INFECTION [None]
